FAERS Safety Report 13358152 (Version 1)
Quarter: 2017Q1

REPORT INFORMATION
  Report Type: Spontaneous
  Country: US (occurrence: US)
  Receive Date: 20170322
  Receipt Date: 20170322
  Transmission Date: 20170429
  Serious: Yes (Hospitalization)
  Sender: FDA-Public Use
  Company Number: US-TEVA-750318USA

PATIENT
  Age: 56 Year
  Sex: Female

DRUGS (15)
  1. COPAXONE [Suspect]
     Active Substance: GLATIRAMER ACETATE
     Indication: MULTIPLE SCLEROSIS
     Route: 058
     Dates: start: 20150522
  2. DULOXETINE. [Concomitant]
     Active Substance: DULOXETINE
  3. CLONAZEPAM. [Concomitant]
     Active Substance: CLONAZEPAM
  4. MECLIZINE [Concomitant]
     Active Substance: MECLIZINE HYDROCHLORIDE
  5. SUMATRIPTAN. [Concomitant]
     Active Substance: SUMATRIPTAN
  6. ORPHENADRINE [Concomitant]
     Active Substance: ORPHENADRINE
  7. DOCUSATE [Concomitant]
     Active Substance: DOCUSATE
  8. CLONIDINE. [Concomitant]
     Active Substance: CLONIDINE
  9. TRAZODONE [Concomitant]
     Active Substance: TRAZODONE HYDROCHLORIDE
  10. LISINOPRIL. [Concomitant]
     Active Substance: LISINOPRIL
  11. BACLOFEN. [Concomitant]
     Active Substance: BACLOFEN
  12. AMLODIPINE [Concomitant]
     Active Substance: AMLODIPINE BESYLATE
  13. PRAVASTATIN. [Concomitant]
     Active Substance: PRAVASTATIN
  14. GABAPENTIN. [Concomitant]
     Active Substance: GABAPENTIN
  15. QUETIAPINE. [Concomitant]
     Active Substance: QUETIAPINE

REACTIONS (12)
  - Pruritus [Unknown]
  - Pain in extremity [Unknown]
  - Injection site mass [Unknown]
  - Blood pressure increased [Recovering/Resolving]
  - Gait disturbance [Unknown]
  - Headache [Unknown]
  - Injection site discolouration [Unknown]
  - Abdominal pain upper [Unknown]
  - Dizziness [Recovering/Resolving]
  - Injection site induration [Unknown]
  - Hypoaesthesia [Recovering/Resolving]
  - Central nervous system lesion [Unknown]

NARRATIVE: CASE EVENT DATE: 2016
